FAERS Safety Report 13579749 (Version 1)
Quarter: 2017Q2

REPORT INFORMATION
  Report Type: Spontaneous
  Country: US (occurrence: US)
  Receive Date: 20170525
  Receipt Date: 20170525
  Transmission Date: 20170830
  Serious: Yes (Other)
  Sender: FDA-Public Use
  Company Number: US-CLINIGEN GROUP PLC/ CLINIGEN HEALTHCARE LTD-E2B_00005146

PATIENT
  Age: 35 Year
  Sex: Male

DRUGS (1)
  1. FOSCAVIR [Suspect]
     Active Substance: FOSCARNET SODIUM
     Indication: CYTOMEGALOVIRUS CHORIORETINITIS
     Dosage: DOSE: 2166 MG TOTAL DAILY DOSE: 6498 MG
     Route: 042

REACTIONS (3)
  - Pollakiuria [Unknown]
  - Hypokalaemia [Unknown]
  - Chills [Unknown]
